FAERS Safety Report 18817025 (Version 1)
Quarter: 2021Q1

REPORT INFORMATION
  Report Type: Spontaneous
  Country: DE (occurrence: DE)
  Receive Date: 20210201
  Receipt Date: 20210201
  Transmission Date: 20210419
  Serious: Yes (Hospitalization)
  Sender: FDA-Public Use
  Company Number: DE-SA-2021SA022698

PATIENT
  Age: 76 Year
  Sex: Female

DRUGS (9)
  1. METOPROLOL. [Concomitant]
     Active Substance: METOPROLOL
     Dosage: 47.5 MG, BID (1?0?1?0)
  2. PALEXIA [Concomitant]
     Active Substance: TAPENTADOL HYDROCHLORIDE
     Dosage: 50 MG, BID
  3. TORASEMID [Concomitant]
     Active Substance: TORSEMIDE
     Dosage: 10 MG, BID
  4. RAMIPRIL. [Concomitant]
     Active Substance: RAMIPRIL
     Dosage: 5 MG, QD
  5. APIXABAN [Suspect]
     Active Substance: APIXABAN
     Dosage: 5 MG, BID
  6. DULOXETINE HYDROCHLORIDE. [Suspect]
     Active Substance: DULOXETINE HYDROCHLORIDE
     Dosage: 30 MG, QD
  7. CLOPIDOGREL BISULFATE. [Suspect]
     Active Substance: CLOPIDOGREL BISULFATE
     Dosage: 75 MG, QD
  8. PREGABALIN. [Concomitant]
     Active Substance: PREGABALIN
     Dosage: 75 MG, QD
  9. BENSERAZIDE;LEVODOPA [Concomitant]
     Active Substance: BENSERAZIDE\LEVODOPA
     Dosage: UNK UNK, HS

REACTIONS (3)
  - General physical health deterioration [Unknown]
  - Fatigue [Unknown]
  - Abdominal pain upper [Unknown]
